FAERS Safety Report 5213272-0 (Version None)
Quarter: 2007Q1

REPORT INFORMATION
  Report Type: 
  Country: None (occurrence: None)
  Receive Date: 20070117
  Receipt Date: 20070117
  Transmission Date: 20070707
  Serious: Yes (Other)
  Sender: FDA-Public Use
  Company Number: None

PATIENT
  Age: 65 Year
  Sex: Male
  Weight: 104 kg

DRUGS (31)
  1. TIGECYCLINE  50 MG  WYETH [Suspect]
     Indication: INFECTION
     Dosage: 100 MG DAILY IV DRIP
     Route: 041
     Dates: start: 20061206, end: 20061206
  2. TIGECYCLINE  50 MG  WYETH [Suspect]
     Indication: INFECTION
     Dosage: 50 MG TWICE DIALY IV DRIP
     Route: 041
     Dates: start: 20061206, end: 20061206
  3. ALBUMIN (HUMAN) [Concomitant]
  4. ALLOPURINOL SODIUM [Concomitant]
  5. ACETAMINOPHEN [Concomitant]
  6. ASPIRIN [Concomitant]
  7. BUPROPION HCL [Concomitant]
  8. CALCIUM CARBONATE W/VITAMIN D [Concomitant]
  9. CETIRIZINE HCL [Concomitant]
  10. CLOTRIMAZOLE [Concomitant]
  11. ESOMEPRAZOLE MAGNESIUM [Concomitant]
  12. EZETIMIBE [Concomitant]
  13. FENTANYL [Concomitant]
  14. FUROSEMIDE [Concomitant]
  15. FILGRASTIM [Concomitant]
  16. HEPARIN [Concomitant]
  17. POTASSIUM CHLORIDE [Concomitant]
  18. LABETALOL HCL [Concomitant]
  19. LOPERAMIDE HCL [Concomitant]
  20. LYMPHOCYTE IG [Concomitant]
  21. MULTIVITAMINS WITH IRON [Concomitant]
  22. MYCOPHENOLATE MOFETIL [Concomitant]
  23. OXYCODONE AND APAP [Concomitant]
  24. ONDANSETRON [Concomitant]
  25. PREDNISONE [Concomitant]
  26. SULFAMETHOXAZOLE + TRIMETHOPRIM [Concomitant]
  27. SIMVASTATIN [Concomitant]
  28. LEVOTHYROXINE SODIUM [Concomitant]
  29. TACROLIMUS [Concomitant]
  30. VALGANCYCLOVIR [Concomitant]
  31. VANCOMYCIN [Concomitant]

REACTIONS (1)
  - RASH MACULO-PAPULAR [None]
